FAERS Safety Report 9084137 (Version 3)
Quarter: 2013Q2

REPORT INFORMATION
  Report Type: Spontaneous
  Country: US (occurrence: US)
  Receive Date: 20130131
  Receipt Date: 20130514
  Transmission Date: 20140414
  Serious: Yes (Other)
  Sender: FDA-Public Use
  Company Number: US-PFIZER INC-2013036406

PATIENT
  Age: 65 Year
  Sex: Female

DRUGS (2)
  1. LYRICA [Suspect]
     Indication: NEURALGIA
     Dosage: 100 MG, 2X/DAY (50 MG, 2 TABS BID)
  2. CYMBALTA [Suspect]
     Dosage: UNK

REACTIONS (3)
  - Diabetes mellitus [Unknown]
  - Pain in extremity [Unknown]
  - Hypoaesthesia [Unknown]
